FAERS Safety Report 4690006-X (Version None)
Quarter: 2005Q2

REPORT INFORMATION
  Report Type: 
  Country: None (occurrence: None)
  Receive Date: 20050513
  Receipt Date: 20040507
  Transmission Date: 20051028
  Serious: Yes (Other)
  Sender: FDA-Public Use
  Company Number: 2004-116140-NL

PATIENT
  Sex: Female

DRUGS (6)
  1. ZEMURON [Suspect]
     Indication: INDUCTION OF ANAESTHESIA
     Dosage: 35 MG ONCE INTRAVENOUS (NOS)
     Route: 042
     Dates: start: 20040507, end: 20040507
  2. PROPOFOL [Concomitant]
  3. FENTANYL [Concomitant]
  4. SEVOFLURANE [Concomitant]
  5. OXYGEN [Concomitant]
  6. VERSED [Concomitant]

REACTIONS (1)
  - NEUROMUSCULAR BLOCK PROLONGED [None]
